FAERS Safety Report 10120675 (Version 2)
Quarter: 2014Q2

REPORT INFORMATION
  Report Type: Spontaneous
  Country: IT (occurrence: IT)
  Receive Date: 20140425
  Receipt Date: 20140516
  Transmission Date: 20141212
  Serious: Yes (Other)
  Sender: FDA-Public Use
  Company Number: IT-SHIRE-IT201401403

PATIENT
  Age: 41 Year
  Sex: Male
  Weight: 60 kg

DRUGS (1)
  1. XAGRID [Suspect]
     Indication: ESSENTIAL THROMBOCYTHAEMIA
     Dosage: 4 MG, 1X/DAY:QD
     Route: 048
     Dates: start: 20081217, end: 20121110

REACTIONS (2)
  - Myelofibrosis [Unknown]
  - Normochromic normocytic anaemia [Recovered/Resolved]
